FAERS Safety Report 14556139 (Version 1)
Quarter: 2018Q1

REPORT INFORMATION
  Report Type: Spontaneous
  Country: AU (occurrence: AU)
  Receive Date: 20180221
  Receipt Date: 20180221
  Transmission Date: 20180509
  Serious: Yes (Other)
  Sender: FDA-Public Use
  Company Number: AU-CONCORDIA PHARMACEUTICALS INC.-GSH201802-000550

PATIENT
  Sex: Female

DRUGS (4)
  1. PARNATE [Suspect]
     Active Substance: TRANYLCYPROMINE SULFATE
  2. PERIACTIN [Concomitant]
     Active Substance: CYPROHEPTADINE HYDROCHLORIDE
  3. VITAMIN D [Concomitant]
     Active Substance: CHOLECALCIFEROL
  4. SIMVASTATIN. [Concomitant]
     Active Substance: SIMVASTATIN

REACTIONS (5)
  - Pruritus generalised [Unknown]
  - Loss of consciousness [Unknown]
  - Dizziness [Unknown]
  - Walking disability [Unknown]
  - Bedridden [Unknown]
